FAERS Safety Report 6642769-1 (Version None)
Quarter: 2010Q1

REPORT INFORMATION
  Report Type: 
  Country: None (occurrence: None)
  Receive Date: 20100319
  Receipt Date: 20100317
  Transmission Date: 20100710
  Serious: Yes (Other)
  Sender: FDA-Public Use
  Company Number: GB-JNJCH-2010006647

PATIENT
  Age: 20 Year
  Sex: Female

DRUGS (1)
  1. NICOTINE [Suspect]
     Indication: DRUG USE FOR UNKNOWN INDICATION
     Route: 062
     Dates: start: 20100218, end: 20100220

REACTIONS (3)
  - APPLICATION SITE BURN [None]
  - DIZZINESS [None]
  - NAUSEA [None]
